FAERS Safety Report 4745668-5 (Version None)
Quarter: 2005Q3

REPORT INFORMATION
  Report Type: 
  Country: None (occurrence: None)
  Receive Date: 20050811
  Receipt Date: 20050802
  Transmission Date: 20060218
  Serious: Yes (Other)
  Sender: FDA-Public Use
  Company Number: 2005110214

PATIENT
  Age: 19 Year
  Sex: Female

DRUGS (2)
  1. AZITHROMYCIN [Suspect]
     Indication: CHLAMYDIAL INFECTION
     Dosage: 1 GRAM (1 GRAM, SINGLE), ORAL
     Route: 048
     Dates: start: 20050608, end: 20050608
  2. METRONIDAZPLE (METRONIDAZOLE) [Concomitant]

REACTIONS (1)
  - HYPOAESTHESIA [None]
